FAERS Safety Report 16188579 (Version 1)
Quarter: 2019Q2

REPORT INFORMATION
  Report Type: Spontaneous
  Country: FR (occurrence: FR)
  Receive Date: 20190412
  Receipt Date: 20190412
  Transmission Date: 20190711
  Serious: Yes (Hospitalization)
  Sender: FDA-Public Use
  Company Number: FR-TEVA-2019-FR-1036068

PATIENT
  Age: 63 Year
  Sex: Male
  Weight: 118 kg

DRUGS (11)
  1. TRAMADOL (CHLORHYDRATE DE) [Concomitant]
     Active Substance: TRAMADOL HYDROCHLORIDE
  2. PREGABALINE [Concomitant]
     Active Substance: PREGABALIN
  3. ECONAZOLE. [Concomitant]
     Active Substance: ECONAZOLE NITRATE
  4. PANTOPRAZOLE [Suspect]
     Active Substance: PANTOPRAZOLE
     Dosage: 40 MILLIGRAM DAILY;
     Route: 048
     Dates: end: 20190308
  5. ZOPICLONE [Concomitant]
     Active Substance: ZOPICLONE
  6. LACTULOSE. [Concomitant]
     Active Substance: LACTULOSE
  7. DEXERYL, CR?ME EN TUBE [Concomitant]
  8. PARACETAMOL [Concomitant]
     Active Substance: ACETAMINOPHEN
  9. BISOPROLOL (FUMARATE ACIDE DE) [Concomitant]
     Active Substance: BISOPROLOL FUMARATE
  10. DALACINE 300 MG, G?LULE [Suspect]
     Active Substance: CLINDAMYCIN PHOSPHATE
     Indication: STAPHYLOCOCCAL INFECTION
     Dosage: 2400 MILLIGRAM DAILY;
     Route: 048
     Dates: start: 20190222, end: 20190308
  11. ZYVOXID 600 MG, COMPRIM? PELLICUL? [Suspect]
     Active Substance: LINEZOLID
     Indication: STAPHYLOCOCCAL INFECTION
     Dosage: 1200 MILLIGRAM DAILY;
     Route: 048
     Dates: start: 20190222, end: 20190306

REACTIONS (3)
  - Leukopenia [Recovered/Resolved]
  - Thrombocytopenia [Recovering/Resolving]
  - Anaemia [Recovering/Resolving]

NARRATIVE: CASE EVENT DATE: 20190303
